FAERS Safety Report 12612304 (Version 2)
Quarter: 2016Q3

REPORT INFORMATION
  Report Type: Report from Study
  Country: MX (occurrence: MX)
  Receive Date: 20160801
  Receipt Date: 20160915
  Transmission Date: 20161109
  Serious: Yes (Other)
  Sender: FDA-Public Use
  Company Number: PHHY2016MX104716

PATIENT
  Age: 38 Year
  Sex: Male
  Weight: 85 kg

DRUGS (3)
  1. PRIKUL//PREGABALIN [Concomitant]
     Indication: CHEST DISCOMFORT
     Dosage: 75 OT, UNK
     Route: 065
  2. GILENYA [Suspect]
     Active Substance: FINGOLIMOD HYDROCHLORIDE
     Indication: MULTIPLE SCLEROSIS
     Dosage: 0.5 MG, QD (MORNINGS)
     Route: 048
     Dates: start: 201502
  3. PRIKUL//PREGABALIN [Concomitant]
     Indication: HERPES ZOSTER
     Dosage: 1 DF, QD
     Route: 048

REACTIONS (2)
  - Abdominal distension [Not Recovered/Not Resolved]
  - Abdominal discomfort [Not Recovered/Not Resolved]

NARRATIVE: CASE EVENT DATE: 201503
